FAERS Safety Report 14987650 (Version 1)
Quarter: 2018Q2

REPORT INFORMATION
  Report Type: Spontaneous
  Country: BR (occurrence: BR)
  Receive Date: 20180608
  Receipt Date: 20180608
  Transmission Date: 20180711
  Serious: Yes (Other)
  Sender: FDA-Public Use
  Company Number: BR-ROCHE-2137027

PATIENT

DRUGS (1)
  1. ACTILYSE [Suspect]
     Active Substance: ALTEPLASE
     Indication: ACUTE CORONARY SYNDROME
     Route: 065

REACTIONS (3)
  - Acute coronary syndrome [Unknown]
  - Off label use [Unknown]
  - Intentional product use issue [Unknown]
